FAERS Safety Report 15617900 (Version 2)
Quarter: 2018Q4

REPORT INFORMATION
  Report Type: Spontaneous
  Country: US (occurrence: US)
  Receive Date: 20181114
  Receipt Date: 20181212
  Transmission Date: 20190205
  Serious: No
  Sender: FDA-Public Use
  Company Number: US-PFIZER INC-2018463374

PATIENT
  Age: 70 Year
  Sex: Female

DRUGS (1)
  1. XELJANZ XR [Suspect]
     Active Substance: TOFACITINIB CITRATE
     Dosage: 11 MG, UNK [X30]
     Dates: start: 20181101, end: 20181105

REACTIONS (2)
  - Chills [Unknown]
  - Night sweats [Unknown]

NARRATIVE: CASE EVENT DATE: 20181105
